FAERS Safety Report 16991023 (Version 2)
Quarter: 2020Q1

REPORT INFORMATION
  Report Type: Report from Study
  Country: US (occurrence: US)
  Receive Date: 20191104
  Receipt Date: 20200205
  Transmission Date: 20200409
  Serious: Yes (Life-Threatening, Hospitalization, Other)
  Sender: FDA-Public Use
  Company Number: US-009507513-1910USA016669

PATIENT
  Age: 72 Year
  Sex: Male

DRUGS (5)
  1. VYTORIN [Suspect]
     Active Substance: EZETIMIBE\SIMVASTATIN
     Indication: BLOOD CHOLESTEROL INCREASED
     Dosage: 10/40MG/ ONCE DAILY
     Route: 048
     Dates: start: 2011
  2. LIPITOR [Concomitant]
     Active Substance: ATORVASTATIN CALCIUM
     Indication: BLOOD CHOLESTEROL INCREASED
  3. ZOCOR [Suspect]
     Active Substance: SIMVASTATIN
     Dosage: 80MG/DAY
  4. TEGRETOL [Concomitant]
     Active Substance: CARBAMAZEPINE
     Indication: SEIZURE
     Dosage: UNK
     Dates: start: 1982
  5. ZOCOR [Suspect]
     Active Substance: SIMVASTATIN
     Indication: BLOOD CHOLESTEROL INCREASED
     Dosage: 20MG/DAILY
     Route: 048
     Dates: start: 1991

REACTIONS (6)
  - Drug ineffective [Unknown]
  - Blood cholesterol increased [Recovered/Resolved]
  - Head discomfort [Unknown]
  - Depression [Unknown]
  - Visual impairment [Unknown]
  - Loss of consciousness [Recovered/Resolved]

NARRATIVE: CASE EVENT DATE: 2018
